FAERS Safety Report 21973016 (Version 2)
Quarter: 2023Q2

REPORT INFORMATION
  Report Type: Spontaneous
  Country: US (occurrence: None)
  Receive Date: 20230209
  Receipt Date: 20230407
  Transmission Date: 20230722
  Serious: Yes (Other)
  Sender: FDA-Public Use
  Company Number: 2023A028627

PATIENT
  Age: 24678 Day
  Sex: Female
  Weight: 68 kg

DRUGS (1)
  1. SYMBICORT [Suspect]
     Active Substance: BUDESONIDE\FORMOTEROL FUMARATE DIHYDRATE
     Indication: Asthma
     Dosage: 160/4.5MCG, 2 INHALATIONS, 2 TIMES A DAY
     Route: 055

REACTIONS (7)
  - Cerebrovascular accident [Unknown]
  - Hemiparesis [Unknown]
  - Generalised tonic-clonic seizure [Unknown]
  - Memory impairment [Unknown]
  - Hypoaesthesia [Unknown]
  - Device malfunction [Unknown]
  - Device use issue [Unknown]

NARRATIVE: CASE EVENT DATE: 20170511
